FAERS Safety Report 11502347 (Version 2)
Quarter: 2016Q3

REPORT INFORMATION
  Report Type: Spontaneous
  Country: US (occurrence: US)
  Receive Date: 20150914
  Receipt Date: 20160915
  Transmission Date: 20161109
  Serious: No
  Sender: FDA-Public Use
  Company Number: US-ASTELLAS-2015US020369

PATIENT
  Sex: Male
  Weight: 116 kg

DRUGS (2)
  1. XTANDI [Suspect]
     Active Substance: ENZALUTAMIDE
     Route: 048
     Dates: start: 20160308
  2. XTANDI [Suspect]
     Active Substance: ENZALUTAMIDE
     Indication: PROSTATE CANCER
     Route: 048
     Dates: start: 2015, end: 20160304

REACTIONS (3)
  - Bone pain [Recovering/Resolving]
  - Drug dose omission [Unknown]
  - Mobility decreased [Not Recovered/Not Resolved]
